FAERS Safety Report 10149279 (Version 1)
Quarter: 2014Q2

REPORT INFORMATION
  Report Type: Spontaneous
  Country: US (occurrence: US)
  Receive Date: 20140502
  Receipt Date: 20140502
  Transmission Date: 20141212
  Serious: Yes (Hospitalization)
  Sender: FDA-Public Use
  Company Number: US-AMGEN-USASP2014031312

PATIENT
  Age: 61 Year
  Sex: Female
  Weight: 69.39 kg

DRUGS (5)
  1. ENBREL [Suspect]
     Indication: PRODUCT USED FOR UNKNOWN INDICATION
     Dosage: 25 MG, 2 TIMES/WK
     Route: 058
  2. VITAMIN E                          /00110501/ [Concomitant]
     Dosage: 200 UNIT, UNK
  3. CO Q-10 [Concomitant]
     Dosage: 100 MG, UNK
  4. CALCIUM [Concomitant]
     Dosage: 500 UNK, UNK
  5. VITAMIN D2 [Concomitant]
     Dosage: 400 UNIT, UNK

REACTIONS (5)
  - Investigation [Unknown]
  - Back pain [Unknown]
  - Neck pain [Unknown]
  - Musculoskeletal pain [Unknown]
  - Injection site bruising [Unknown]
